FAERS Safety Report 4710047-3 (Version None)
Quarter: 2005Q3

REPORT INFORMATION
  Report Type: 
  Country: None (occurrence: None)
  Receive Date: 20050707
  Receipt Date: 20050623
  Transmission Date: 20060218
  Serious: Yes (Hospitalization)
  Sender: FDA-Public Use
  Company Number: 232299K05USA

PATIENT
  Sex: Female

DRUGS (1)
  1. REBIF [Suspect]
     Indication: MULTIPLE SCLEROSIS
     Dosage: 44 MCG
     Dates: start: 20031201, end: 20041101

REACTIONS (7)
  - DRUG HYPERSENSITIVITY [None]
  - INJECTION SITE DISCOLOURATION [None]
  - INJECTION SITE PAIN [None]
  - INJECTION SITE ULCER [None]
  - PSEUDOMONAS INFECTION [None]
  - SKIN LESION [None]
  - STAPHYLOCOCCAL INFECTION [None]
